FAERS Safety Report 25914437 (Version 2)
Quarter: 2025Q4

REPORT INFORMATION
  Report Type: Spontaneous
  Country: MA (occurrence: MA)
  Receive Date: 20251013
  Receipt Date: 20251024
  Transmission Date: 20260118
  Serious: Yes (Other)
  Sender: ALKEM
  Company Number: MA-ALKEM LABORATORIES LIMITED-MA-ALKEM-2025-10897

PATIENT
  Age: 43 Year
  Sex: Female

DRUGS (3)
  1. MESALAMINE [Suspect]
     Active Substance: MESALAMINE
     Indication: Crohn^s disease
     Dosage: 2 GRAM, OD
     Route: 048
  2. MESALAMINE [Suspect]
     Active Substance: MESALAMINE
     Indication: Inflammatory bowel disease
     Dosage: 3 GRAM, OD (INCREASED DOSE)
     Route: 048
  3. MESALAMINE [Suspect]
     Active Substance: MESALAMINE
     Dosage: 2 GRAM, OD (REDUCED DOSE)
     Route: 048

REACTIONS (1)
  - Pancytopenia [Recovering/Resolving]
